FAERS Safety Report 10389559 (Version 3)
Quarter: 2017Q1

REPORT INFORMATION
  Report Type: Report from Study
  Country: US (occurrence: US)
  Receive Date: 20140818
  Receipt Date: 20170302
  Transmission Date: 20170428
  Serious: Yes (Other)
  Sender: FDA-Public Use
  Company Number: US-ROCHE-1445996

PATIENT

DRUGS (3)
  1. SIMEPREVIR [Suspect]
     Active Substance: SIMEPREVIR
     Indication: CHRONIC HEPATITIS C
     Route: 048
  2. RIBAVIRIN. [Suspect]
     Active Substance: RIBAVIRIN
     Indication: CHRONIC HEPATITIS C
     Dosage: IN PATIENTS WITH BODYWEIGHT { 75 KG 1000 MG?IN PATIENTS WITH BODYWEIGHT }/= 75 KG 1200 MG
     Route: 065
  3. SOFOSBUVIR [Suspect]
     Active Substance: SOFOSBUVIR
     Indication: CHRONIC HEPATITIS C
     Route: 048

REACTIONS (13)
  - Amylase increased [Unknown]
  - Prothrombin time prolonged [Unknown]
  - Blood bilirubin increased [Unknown]
  - Rash [Unknown]
  - Pruritus [Unknown]
  - Neutropenia [Unknown]
  - Hyperglycaemia [Unknown]
  - Visual impairment [Unknown]
  - Cholelithiasis [Unknown]
  - Ischaemic stroke [Unknown]
  - Photosensitivity reaction [Unknown]
  - Retinal tear [Unknown]
  - Anaemia [Unknown]
